FAERS Safety Report 4401790-4 (Version None)
Quarter: 2004Q3

REPORT INFORMATION
  Report Type: 
  Country: None (occurrence: None)
  Receive Date: 20040719
  Receipt Date: 20020905
  Transmission Date: 20050211
  Serious: Yes (Hospitalization, Other)
  Sender: FDA-Public Use
  Company Number: US-MERCK-0209USA00468

PATIENT
  Age: 58 Year
  Sex: Female
  Weight: 64 kg

DRUGS (6)
  1. FOSAMAX [Concomitant]
     Route: 065
     Dates: start: 20000508
  2. PREMARIN [Concomitant]
     Route: 065
  3. ROBAXIN [Concomitant]
     Route: 048
     Dates: start: 20000508
  4. PRILOSEC [Concomitant]
     Route: 065
  5. VIOXX [Suspect]
     Indication: RHEUMATOID ARTHRITIS
     Route: 048
     Dates: start: 20000501, end: 20010801
  6. VIOXX [Suspect]
     Route: 048
     Dates: start: 20010801, end: 20010101

REACTIONS (31)
  - ANXIETY [None]
  - BILIARY NEOPLASM [None]
  - BRONCHIECTASIS [None]
  - CALCINOSIS [None]
  - CELLULITIS [None]
  - CHOLELITHIASIS [None]
  - CHRONIC OBSTRUCTIVE AIRWAYS DISEASE [None]
  - COLLAPSE OF LUNG [None]
  - CONSTIPATION [None]
  - CORONARY ARTERY DISEASE [None]
  - DIVERTICULUM [None]
  - DRUG INEFFECTIVE [None]
  - DUODENITIS [None]
  - EAR PAIN [None]
  - EMPHYSEMA [None]
  - EROSIVE OESOPHAGITIS [None]
  - GASTRITIS HAEMORRHAGIC [None]
  - HEPATITIS [None]
  - HYPERSENSITIVITY [None]
  - LUNG NEOPLASM [None]
  - MYCOBACTERIUM AVIUM COMPLEX INFECTION [None]
  - MYOCARDIAL INFARCTION [None]
  - NAUSEA [None]
  - OTITIS EXTERNA [None]
  - PRURITUS [None]
  - RASH MORBILLIFORM [None]
  - RASH VESICULAR [None]
  - UPPER RESPIRATORY TRACT INFECTION [None]
  - URINARY TRACT INFECTION [None]
  - VITREOUS FLOATERS [None]
  - WEIGHT DECREASED [None]
